FAERS Safety Report 23887234 (Version 2)
Quarter: 2024Q2

REPORT INFORMATION
  Report Type: Spontaneous
  Country: FR (occurrence: FR)
  Receive Date: 20240523
  Receipt Date: 20240601
  Transmission Date: 20240716
  Serious: Yes (Hospitalization, Other)
  Sender: FDA-Public Use
  Company Number: FR-MEDAC-2024-AER-01086

PATIENT
  Age: 53 Year
  Sex: Male

DRUGS (6)
  1. PEMETREXED [Suspect]
     Active Substance: PEMETREXED
     Indication: Lung adenocarcinoma stage IV
     Dosage: 500 MG/M2 FIRST CYCLE OF MAINTENANCE CHEMOTHERAPY
     Route: 065
  2. PEMETREXED [Suspect]
     Active Substance: PEMETREXED
     Indication: Non-small cell lung cancer stage IV
     Dosage: 4 CYCLES OF CHEMOTHERAPY COMBINING CIS-PLATINUM AND PEMETREXED
     Route: 065
  3. PEMETREXED [Suspect]
     Active Substance: PEMETREXED
     Indication: Chemotherapy
     Dosage: UNK
     Route: 065
  4. CISPLATIN [Concomitant]
     Active Substance: CISPLATIN
     Indication: Lung adenocarcinoma stage IV
     Dosage: 4 CYCLES OF CHEMOTHERAPY COMBINING CIS-PLATINUM AND PEMETREXED
     Route: 065
  5. CISPLATIN [Concomitant]
     Active Substance: CISPLATIN
     Indication: Non-small cell lung cancer stage IV
  6. CISPLATIN [Concomitant]
     Active Substance: CISPLATIN
     Indication: Chemotherapy

REACTIONS (3)
  - Pancytopenia [Recovered/Resolved]
  - Visceral leishmaniasis [Recovered/Resolved]
  - Drug ineffective [Unknown]
